FAERS Safety Report 9259314 (Version 3)
Quarter: 2013Q2

REPORT INFORMATION
  Report Type: Report from Study
  Country: CA (occurrence: CA)
  Receive Date: 20130427
  Receipt Date: 20130502
  Transmission Date: 20140414
  Serious: Yes (Death, Hospitalization, Other)
  Sender: FDA-Public Use
  Company Number: CA-ROCHE-1211840

PATIENT
  Sex: Male
  Weight: 76.2 kg

DRUGS (21)
  1. RITUXAN [Suspect]
     Indication: CHRONIC LYMPHOCYTIC LEUKAEMIA
     Dosage: RECEIVED 4 DOSES OF RITUXAN,  CHEMOTHERAPY 1
     Route: 042
     Dates: start: 2012, end: 201209
  2. PEGFILGRASTIM [Suspect]
     Indication: CHRONIC LYMPHOCYTIC LEUKAEMIA
     Dosage: CHEMOTHERAPY 3
     Route: 042
     Dates: start: 201303
  3. FLUDARABINE [Suspect]
     Indication: CHRONIC LYMPHOCYTIC LEUKAEMIA
     Dosage: CHEMOTHERAPY 1
     Route: 042
     Dates: start: 2012, end: 201209
  4. CYCLOPHOSPHAMIDE [Suspect]
     Indication: CHRONIC LYMPHOCYTIC LEUKAEMIA
     Dosage: CHEMOTHERAPY 1
     Route: 042
     Dates: start: 2012, end: 201209
  5. VINCRISTINE [Suspect]
     Indication: CHRONIC LYMPHOCYTIC LEUKAEMIA
     Dosage: CHEMOTHERAPY 2
     Route: 042
     Dates: start: 201212, end: 201303
  6. BLEOMYCIN [Suspect]
     Indication: CHRONIC LYMPHOCYTIC LEUKAEMIA
     Dosage: CHEMOTHERAPY 2
     Route: 042
     Dates: start: 201212, end: 201303
  7. PREDNISONE [Suspect]
     Indication: CHRONIC LYMPHOCYTIC LEUKAEMIA
     Dosage: CHEMOTHERAPY 2
     Route: 042
     Dates: start: 201212, end: 201303
  8. BENDAMUSTINE [Suspect]
     Indication: CHRONIC LYMPHOCYTIC LEUKAEMIA
     Dosage: CHEMOTHERAPY 3
     Route: 042
     Dates: start: 201303
  9. HYDROCHLOROTHIAZIDE [Suspect]
     Indication: BLOOD PRESSURE
     Route: 065
     Dates: end: 20130404
  10. HYDROCHLOROTHIAZIDE [Suspect]
     Route: 042
  11. ENALAPRIL [Suspect]
     Indication: BLOOD PRESSURE
     Route: 065
     Dates: end: 20130404
  12. ENALAPRIL [Suspect]
     Route: 042
  13. CHOLECALCIFEROL [Concomitant]
  14. TYLENOL [Concomitant]
     Route: 065
  15. ANUSOL-HC CREAM (CANADA) [Concomitant]
     Indication: HAEMORRHOIDS
  16. LUTEIN [Concomitant]
  17. OXAZEPAM [Concomitant]
     Indication: ANXIETY
  18. FLUTICASONE [Concomitant]
     Indication: UPPER-AIRWAY COUGH SYNDROME
     Route: 065
  19. FLUTICASONE [Concomitant]
     Indication: SEASONAL ALLERGY
  20. SERTRALINE [Concomitant]
  21. PROCHLORPERAZINE [Concomitant]
     Indication: NAUSEA

REACTIONS (4)
  - Febrile neutropenia [Recovering/Resolving]
  - Drug ineffective [Unknown]
  - Blood pressure decreased [Unknown]
  - Death [Fatal]
